FAERS Safety Report 14372418 (Version 2)
Quarter: 2018Q1

REPORT INFORMATION
  Report Type: Report from Study
  Country: CN (occurrence: CN)
  Receive Date: 20180110
  Receipt Date: 20180112
  Transmission Date: 20180509
  Serious: Yes (Hospitalization)
  Sender: FDA-Public Use
  Company Number: CN-ASTRAZENECA-2017SF30474

PATIENT
  Age: 28401 Day
  Sex: Male
  Weight: 64 kg

DRUGS (35)
  1. NIFEDIPINE. [Concomitant]
     Active Substance: NIFEDIPINE
  2. CEFDINIR. [Concomitant]
     Active Substance: CEFDINIR
  3. ATORVASTATIN [Concomitant]
     Active Substance: ATORVASTATIN
  4. ETHAMBUTOL [Concomitant]
     Active Substance: ETHAMBUTOL HYDROCHLORIDE
  5. SYMBICORT [Suspect]
     Active Substance: BUDESONIDE\FORMOTEROL FUMARATE DIHYDRATE
     Indication: CHRONIC OBSTRUCTIVE PULMONARY DISEASE
     Dosage: 200/6 ???G EX-ACTUATOR BID
     Route: 055
     Dates: start: 20170619
  6. PROGESTERONE. [Concomitant]
     Active Substance: PROGESTERONE
  7. HYDROXYCHLOROQUINE SULFATE. [Concomitant]
     Active Substance: HYDROXYCHLOROQUINE SULFATE
  8. SALMETEROL XINAFOATE [Concomitant]
     Active Substance: SALMETEROL XINAFOATE
  9. IPRATROPIUM BROMIDE. [Concomitant]
     Active Substance: IPRATROPIUM BROMIDE
  10. CALCIUM CARBONATE. [Concomitant]
     Active Substance: CALCIUM CARBONATE
  11. AMBROXOL HYDROCHLORIDE [Concomitant]
     Active Substance: AMBROXOL HYDROCHLORIDE
  12. RIFAMPICIN [Concomitant]
     Active Substance: RIFAMPIN
  13. PYRAZINAMIDE. [Concomitant]
     Active Substance: PYRAZINAMIDE
  14. TAMSULOSIN HYDROCHLORIDE. [Concomitant]
     Active Substance: TAMSULOSIN HYDROCHLORIDE
  15. LANSOPRAZOLE. [Concomitant]
     Active Substance: LANSOPRAZOLE
     Dates: start: 20171120
  16. SILYMARIN PIAN [Concomitant]
  17. PLACENTA [Concomitant]
     Active Substance: SUS SCROFA PLACENTA
  18. PULMICORT RESPULES [Concomitant]
     Active Substance: BUDESONIDE
  19. PHLOROGLUCINOL [Concomitant]
     Active Substance: PHLOROGLUCINOL
  20. CEFTRIAXONE SODIUM. [Concomitant]
     Active Substance: CEFTRIAXONE SODIUM
  21. ISONIAZID. [Concomitant]
     Active Substance: ISONIAZID
  22. VALSARTAN. [Concomitant]
     Active Substance: VALSARTAN
  23. SALMETEROL XINAFOATE [Concomitant]
     Active Substance: SALMETEROL XINAFOATE
     Indication: CHRONIC OBSTRUCTIVE PULMONARY DISEASE
     Dosage: ONGOING
     Route: 055
     Dates: start: 20171206
  24. PULMICORT TURBUHALER (BUDESONIDE POWDER FOR INHALATION) [Concomitant]
  25. MEZLOCILLIN [Concomitant]
     Active Substance: MEZLOCILLIN
  26. AMBROXOL HYDROCHLORIDE [Concomitant]
     Active Substance: AMBROXOL HYDROCHLORIDE
  27. RESERPINE. [Concomitant]
     Active Substance: RESERPINE
  28. MOXIFLOXACIN HYDROCHLORIDE. [Concomitant]
     Active Substance: MOXIFLOXACIN HYDROCHLORIDE
  29. TAMSULOSIN HYDROCHLORIDE. [Concomitant]
     Active Substance: TAMSULOSIN HYDROCHLORIDE
     Indication: PROSTATE CANCER
     Route: 048
     Dates: start: 20170603, end: 20170610
  30. MELOXICAM. [Concomitant]
     Active Substance: MELOXICAM
     Dates: start: 20171120
  31. GLUCOSAMINE [Concomitant]
     Active Substance: GLUCOSAMINE
     Dates: start: 20171120
  32. PREDNISONE. [Concomitant]
     Active Substance: PREDNISONE
  33. POTASSIUM CHLORIDE. [Concomitant]
     Active Substance: POTASSIUM CHLORIDE
     Indication: BLOOD POTASSIUM
     Route: 048
     Dates: start: 201711
  34. LEVOFLOXACIN. [Concomitant]
     Active Substance: LEVOFLOXACIN
     Dates: start: 20171122
  35. CALCITRIOL. [Concomitant]
     Active Substance: CALCITRIOL
     Indication: BLOOD CALCIUM
     Dosage: ONGOING

REACTIONS (1)
  - Pulmonary tuberculosis [Recovered/Resolved]

NARRATIVE: CASE EVENT DATE: 20171124
